FAERS Safety Report 9519930 (Version 1)
Quarter: 2013Q1

REPORT INFORMATION
  Report Type: Spontaneous
  Country: US (occurrence: None)
  Receive Date: 20130305
  Receipt Date: 20130305
  Transmission Date: 20140127
  Serious: Yes (Other)
  Sender: FDA-Public Use
  Company Number: 163-21880-12010179

PATIENT
  Age: 51 Year
  Sex: Female

DRUGS (9)
  1. REVLIMID [Suspect]
     Indication: PLASMA CELL MYELOMA
     Dosage: 25 MG, 21 IN 21 D, PO
     Route: 048
     Dates: start: 20111230
  2. LEVAQUIN (LEVOFLOXACIN) [Concomitant]
  3. ASPIRIN (ACETYLSALICYLIC ACID) [Concomitant]
  4. BACTRIM DS (BACTRIM) [Concomitant]
  5. DEXAMETHASONE (DEXAMETHASONE) [Concomitant]
  6. ALLEGRA [Concomitant]
  7. AZITHROMYCIN (AZITHROMYCIN) [Concomitant]
  8. BENZONATATE (BENZONATATE) [Concomitant]
  9. VITAMIN D (ERGOCALCIFEROL) [Concomitant]

REACTIONS (4)
  - Pruritus [None]
  - Pruritus [None]
  - Rash pruritic [None]
  - Drug dose omission [None]
